FAERS Safety Report 4877836-6 (Version None)
Quarter: 2006Q1

REPORT INFORMATION
  Report Type: 
  Country: None (occurrence: None)
  Receive Date: 20060109
  Receipt Date: 20060103
  Transmission Date: 20060701
  Serious: Yes (Death, Life-Threatening, Other)
  Sender: FDA-Public Use
  Company Number: USA-2006-0022058

PATIENT
  Age: 44 Year
  Sex: Male
  Weight: 92.5 kg

DRUGS (6)
  1. OXYCODONE HCL [Suspect]
     Dosage: UNK
     Route: 065
  2. MORPHINE SULFATE [Suspect]
     Dosage: UNK
     Route: 065
  3. GUAIFENESIN (GUAIFENESIN) [Suspect]
     Dosage: UNK
     Route: 065
  4. ACETAMINOPHEN [Suspect]
     Dosage: UNK
     Route: 065
  5. METHOCARBAMOL [Suspect]
     Dosage: UNK
     Route: 065
  6. CODEINE (CODEINE) [Suspect]
     Dosage: UNK
     Route: 065

REACTIONS (8)
  - ACCIDENTAL DEATH [None]
  - CEREBRAL INFARCTION [None]
  - CEREBROVASCULAR ACCIDENT [None]
  - ENTEROCOLITIS INFECTIOUS [None]
  - LOSS OF CONSCIOUSNESS [None]
  - MULTIPLE DRUG OVERDOSE ACCIDENTAL [None]
  - MYOGLOBIN URINE [None]
  - RENAL FAILURE [None]
